FAERS Safety Report 24395375 (Version 1)
Quarter: 2024Q4

REPORT INFORMATION
  Report Type: Spontaneous
  Country: AT (occurrence: AT)
  Receive Date: 20241004
  Receipt Date: 20241004
  Transmission Date: 20250114
  Serious: Yes (Other)
  Sender: EMD SERONO INC
  Company Number: AT-Merck Healthcare KGaA-2024052140

PATIENT
  Age: 39 Year
  Sex: Female

DRUGS (2)
  1. MAVENCLAD [Suspect]
     Active Substance: CLADRIBINE
     Indication: Relapsing-remitting multiple sclerosis
     Dosage: FIRST WEEK THERAPY
     Dates: start: 202405
  2. MAVENCLAD [Suspect]
     Active Substance: CLADRIBINE
     Dosage: SECOND WEEK THERAPY

REACTIONS (1)
  - Optic neuritis [Unknown]

NARRATIVE: CASE EVENT DATE: 20240901
